FAERS Safety Report 9129407 (Version 1)
Quarter: 2013Q1

REPORT INFORMATION
  Report Type: Report from Study
  Country: US (occurrence: US)
  Receive Date: 20130228
  Receipt Date: 20130228
  Transmission Date: 20140127
  Serious: Yes (Other)
  Sender: FDA-Public Use
  Company Number: US-JNJFOC-20130212770

PATIENT
  Age: 64 None
  Sex: Male
  Weight: 208 kg

DRUGS (9)
  1. REMICADE [Suspect]
     Indication: COLITIS ULCERATIVE
     Route: 042
     Dates: start: 20110919, end: 201202
  2. REMICADE [Suspect]
     Indication: COLITIS ULCERATIVE
     Route: 042
     Dates: start: 201204
  3. SIMVASTATIN [Concomitant]
  4. LISINOPRIL [Concomitant]
  5. SULFASALAZINE [Concomitant]
     Dates: start: 20111025
  6. SULFASALAZINE [Concomitant]
     Dates: start: 201212
  7. SULFASALAZINE [Concomitant]
     Dates: start: 201205
  8. PREDNISONE [Concomitant]
     Dates: start: 20121002
  9. CANASA [Concomitant]
     Dates: start: 20111025

REACTIONS (6)
  - Prostate cancer [Not Recovered/Not Resolved]
  - Spinal compression fracture [Unknown]
  - Colitis ulcerative [Recovered/Resolved]
  - Adverse event [Not Recovered/Not Resolved]
  - Fatigue [Unknown]
  - Malaise [Unknown]
